FAERS Safety Report 9829635 (Version 2)
Quarter: 2014Q1

REPORT INFORMATION
  Report Type: Spontaneous
  Country: US (occurrence: US)
  Receive Date: 20140120
  Receipt Date: 20140219
  Transmission Date: 20141002
  Serious: Yes (Other)
  Sender: FDA-Public Use
  Company Number: US-BIOGENIDEC-2014BI004558

PATIENT
  Age: 52 Year
  Sex: Female

DRUGS (4)
  1. TECFIDERA [Suspect]
     Indication: MULTIPLE SCLEROSIS
     Route: 048
     Dates: start: 20140109, end: 20140109
  2. LISINOPRIL [Concomitant]
  3. VITAMIN B 12 [Concomitant]
  4. TYLENOL [Concomitant]

REACTIONS (1)
  - Angioedema [Recovered/Resolved]
